FAERS Safety Report 25691314 (Version 2)
Quarter: 2025Q3

REPORT INFORMATION
  Report Type: Spontaneous
  Country: TR (occurrence: TR)
  Receive Date: 20250818
  Receipt Date: 20250901
  Transmission Date: 20251020
  Serious: Yes (Other)
  Sender: ELI LILLY AND COMPANY
  Company Number: TR-ELI_LILLY_AND_COMPANY-TR202508014980

PATIENT
  Age: 40 Year
  Sex: Male

DRUGS (1)
  1. IXEKIZUMAB [Suspect]
     Active Substance: IXEKIZUMAB
     Indication: Product used for unknown indication
     Route: 042

REACTIONS (4)
  - Swelling [Unknown]
  - Skin exfoliation [Unknown]
  - Rash [Unknown]
  - Incorrect route of product administration [Unknown]
